FAERS Safety Report 11369013 (Version 2)
Quarter: 2015Q4

REPORT INFORMATION
  Report Type: Report from Study
  Country: FR (occurrence: FR)
  Receive Date: 20150812
  Receipt Date: 20151015
  Transmission Date: 20160304
  Serious: Yes (Hospitalization)
  Sender: FDA-Public Use
  Company Number: PHHO2015FR012864

PATIENT
  Age: 34 Year
  Sex: Male
  Weight: 75 kg

DRUGS (13)
  1. STI571 [Suspect]
     Active Substance: IMATINIB MESYLATE
     Dosage: 600 MG, QD
     Route: 048
     Dates: start: 20100715
  2. METHOTREXATE [Suspect]
     Active Substance: METHOTREXATE
     Indication: ACUTE LYMPHOCYTIC LEUKAEMIA
     Dosage: 1960 MG, QD
     Route: 037
     Dates: start: 20100621
  3. WELLVONE [Concomitant]
     Active Substance: ATOVAQUONE
     Indication: ANTIFUNGAL PROPHYLAXIS
     Dosage: 5 ML, QD (1 CM)
     Route: 065
     Dates: start: 20100517
  4. PURINETHOL [Suspect]
     Active Substance: MERCAPTOPURINE
     Indication: ACUTE LYMPHOCYTIC LEUKAEMIA
     Dosage: 100 MG, QD
     Route: 048
     Dates: start: 20100715, end: 20100718
  5. PURINETHOL [Suspect]
     Active Substance: MERCAPTOPURINE
     Dosage: 150 MG, QD
     Route: 048
     Dates: start: 20100718
  6. AUGMENTIN [Concomitant]
     Active Substance: AMOXICILLIN\CLAVULANATE POTASSIUM
     Indication: ANTIBIOTIC THERAPY
     Dosage: 3 G, QD
     Route: 048
     Dates: start: 20100705, end: 20100716
  7. METHOTREXATE [Suspect]
     Active Substance: METHOTREXATE
     Dosage: 47.5 MG, QD
     Route: 048
     Dates: start: 20100715, end: 20100715
  8. STI571 [Suspect]
     Active Substance: IMATINIB MESYLATE
     Indication: ACUTE LYMPHOCYTIC LEUKAEMIA
     Dosage: 800 MG, BID
     Route: 048
     Dates: start: 20100621
  9. METHOTREXATE [Suspect]
     Active Substance: METHOTREXATE
     Dosage: 47.5 MG, QD
     Route: 048
     Dates: start: 20100722
  10. ZELITREX [Concomitant]
     Active Substance: VALACYCLOVIR HYDROCHLORIDE
     Indication: ANTIFUNGAL PROPHYLAXIS
     Dosage: 1000 MG, QD
     Route: 048
     Dates: start: 20100517
  11. ALMOGRAN [Concomitant]
     Active Substance: ALMOTRIPTAN MALATE
     Indication: MIGRAINE PROPHYLAXIS
     Dosage: 1 TABLET IF MIGRAINE(MAXIMUM 2 TABLETS/DAY, 1 CP)
     Route: 048
     Dates: start: 20100706
  12. ARACYTINE [Suspect]
     Active Substance: CYTARABINE
     Indication: ACUTE LYMPHOCYTIC LEUKAEMIA
     Dosage: 11760 MG, QD
     Route: 042
     Dates: start: 20100622
  13. NEULASTA [Concomitant]
     Active Substance: PEGFILGRASTIM
     Indication: ACUTE LYMPHOCYTIC LEUKAEMIA
     Dosage: 6 MG, QD
     Route: 058
     Dates: start: 20100626

REACTIONS (4)
  - Nausea [Recovered/Resolved]
  - Constipation [Recovered/Resolved]
  - Febrile bone marrow aplasia [Recovered/Resolved]
  - Vomiting [Recovered/Resolved]

NARRATIVE: CASE EVENT DATE: 20100702
